FAERS Safety Report 20980479 (Version 1)
Quarter: 2022Q2

REPORT INFORMATION
  Report Type: Spontaneous
  Country: DE (occurrence: DE)
  Receive Date: 20220620
  Receipt Date: 20220620
  Transmission Date: 20220721
  Serious: Yes (Hospitalization, Other)
  Sender: FDA-Public Use
  Company Number: DE-NOVARTISPH-NVSC2022DE139980

PATIENT
  Age: 67 Year
  Sex: Female

DRUGS (4)
  1. DOXEPIN HYDROCHLORIDE [Suspect]
     Active Substance: DOXEPIN HYDROCHLORIDE
     Indication: Product used for unknown indication
     Dosage: UNTIL CHANGE TO DOXEPIN-NEURAXPHARM
     Route: 048
     Dates: start: 2012
  2. DOXEPIN HYDROCHLORIDE [Suspect]
     Active Substance: DOXEPIN HYDROCHLORIDE
     Indication: Sleep disorder
     Dosage: 50 MG BEFORE BED, REDUCED TO 25 MG (1/2 TABLET) BEFORE BEDSINCE 4 WEEKS
     Route: 048
     Dates: start: 2010
  3. DOXEPIN HYDROCHLORIDE [Suspect]
     Active Substance: DOXEPIN HYDROCHLORIDE
     Dosage: 50 MG BEFORE BED, REDUCED TO 25 MG (1/2 TABLET) BEFORE BEDSINCE 4 WEEKS
     Route: 048
     Dates: start: 2010
  4. ARCOXIA [Concomitant]
     Active Substance: ETORICOXIB
     Indication: Rheumatic disorder
     Dosage: AS NEEDED
     Route: 065

REACTIONS (10)
  - Dystonia [Not Recovered/Not Resolved]
  - Movement disorder [Not Recovered/Not Resolved]
  - Polyneuropathy [Not Recovered/Not Resolved]
  - Gait disturbance [Not Recovered/Not Resolved]
  - Neuralgia [Not Recovered/Not Resolved]
  - Muscle atrophy [Not Recovered/Not Resolved]
  - Muscle spasms [Not Recovered/Not Resolved]
  - Musculoskeletal stiffness [Not Recovered/Not Resolved]
  - Burning sensation [Not Recovered/Not Resolved]
  - Tinnitus [Not Recovered/Not Resolved]

NARRATIVE: CASE EVENT DATE: 20140101
